FAERS Safety Report 5669369-4 (Version None)
Quarter: 2008Q1

REPORT INFORMATION
  Report Type: 
  Country: None (occurrence: None)
  Receive Date: 20080317
  Receipt Date: 20080306
  Transmission Date: 20080703
  Serious: Yes (Other)
  Sender: FDA-Public Use
  Company Number: US-MERCK-0706USA03760

PATIENT
  Age: 79 Year
  Sex: Female
  Weight: 38 kg

DRUGS (2)
  1. FOSAMAX [Suspect]
     Indication: OSTEOPOROSIS
     Route: 048
     Dates: start: 19950101
  2. FOSAMAX [Suspect]
     Route: 048
     Dates: end: 20050801

REACTIONS (11)
  - ANXIETY [None]
  - DEPRESSION [None]
  - FALL [None]
  - OSTEOMYELITIS [None]
  - OSTEONECROSIS [None]
  - PELVIC FRACTURE [None]
  - PLATELET COUNT INCREASED [None]
  - STERNAL FRACTURE [None]
  - THROMBOCYTHAEMIA [None]
  - WEIGHT DECREASED [None]
  - WRIST FRACTURE [None]
